FAERS Safety Report 6009920-8 (Version None)
Quarter: 2008Q4

REPORT INFORMATION
  Report Type: 
  Country: None (occurrence: None)
  Receive Date: 20081217
  Receipt Date: 20081217
  Transmission Date: 20090506
  Serious: Yes (Other)
  Sender: FDA-Public Use
  Company Number: None

PATIENT
  Age: 16 Year
  Sex: Male

DRUGS (2)
  1. ACCUTANE [Suspect]
     Indication: ACNE
     Dosage: 5 MG. 2X'S DAILY PILL
     Dates: start: 20080701, end: 20080801
  2. ACCUTANE [Suspect]
     Indication: ACNE
     Dosage: 5 MG. 2X'S DAILY PILL
     Dates: start: 20081101, end: 20081201

REACTIONS (1)
  - GRAND MAL CONVULSION [None]
